FAERS Safety Report 24588020 (Version 1)
Quarter: 2024Q4

REPORT INFORMATION
  Report Type: Spontaneous
  Country: US (occurrence: US)
  Receive Date: 20241107
  Receipt Date: 20241107
  Transmission Date: 20250115
  Serious: No
  Sender: INSMED
  Company Number: US-INSMED, INC.-2024-00585-US

PATIENT
  Age: 73 Year
  Sex: Female

DRUGS (8)
  1. ARIKAYCE [Suspect]
     Active Substance: AMIKACIN
     Indication: Mycobacterium avium complex infection
     Dosage: 590 MILLIGRAM, UNK
     Route: 055
     Dates: start: 20210708
  2. ETHAMBUTOL [Concomitant]
     Active Substance: ETHAMBUTOL HYDROCHLORIDE
     Indication: Mycobacterium avium complex infection
     Dosage: UNK, UNK
     Route: 065
     Dates: end: 202001
  3. ETHAMBUTOL [Concomitant]
     Active Substance: ETHAMBUTOL HYDROCHLORIDE
     Dosage: 400 MILLIGRAM, BID
     Route: 048
     Dates: start: 20200910
  4. ZITHROMAX [Concomitant]
     Active Substance: AZITHROMYCIN DIHYDRATE
     Indication: Mycobacterium avium complex infection
     Dosage: UNK, UNK
     Route: 065
     Dates: end: 202001
  5. ZITHROMAX [Concomitant]
     Active Substance: AZITHROMYCIN DIHYDRATE
     Dosage: 500 MILLIGRAM, UNK DAILY
     Route: 048
     Dates: start: 20200910
  6. RIFAMPIN [Concomitant]
     Active Substance: RIFAMPIN
     Indication: Mycobacterium avium complex infection
     Dosage: 600
     Route: 065
     Dates: start: 20200930
  7. EPETRABOROLE [Concomitant]
     Active Substance: EPETRABOROLE
     Indication: Mycobacterium avium complex infection
     Dosage: UNK, UNK
     Route: 065
  8. BACTRIM DS [Concomitant]
     Active Substance: SULFAMETHOXAZOLE\TRIMETHOPRIM
     Indication: Antifungal prophylaxis
     Dosage: ONE TAB DAILY, QD
     Route: 065

REACTIONS (1)
  - Drug ineffective [Unknown]
